FAERS Safety Report 6823605-7 (Version None)
Quarter: 2010Q3

REPORT INFORMATION
  Report Type: 
  Country: None (occurrence: None)
  Receive Date: 20100708
  Receipt Date: 20060810
  Transmission Date: 20110219
  Serious: No
  Sender: FDA-Public Use
  Company Number: US-PFIZER INC-2006098821

PATIENT
  Sex: Male

DRUGS (2)
  1. CHANTIX [Suspect]
     Indication: EX-TOBACCO USER
     Route: 065
     Dates: start: 20060809
  2. NICOTROL [Concomitant]
     Route: 062

REACTIONS (1)
  - FEELING OF RELAXATION [None]
